FAERS Safety Report 25853466 (Version 1)
Quarter: 2025Q3

REPORT INFORMATION
  Report Type: Spontaneous
  Country: CN (occurrence: CN)
  Receive Date: 20250926
  Receipt Date: 20250926
  Transmission Date: 20251020
  Serious: Yes (Other)
  Sender: ALEXION PHARMACEUTICALS
  Company Number: CN-AstraZeneca-CH-00957518A

PATIENT
  Age: 46 Year
  Sex: Female

DRUGS (5)
  1. IMFINZI [Suspect]
     Active Substance: DURVALUMAB
     Indication: Lung adenocarcinoma
  2. IMFINZI [Suspect]
     Active Substance: DURVALUMAB
  3. IMFINZI [Suspect]
     Active Substance: DURVALUMAB
  4. PACLITAXEL [Concomitant]
     Active Substance: PACLITAXEL
  5. CATEQUENTINIB [Concomitant]
     Active Substance: CATEQUENTINIB

REACTIONS (2)
  - Metastases to central nervous system [Unknown]
  - Pustular psoriasis [Recovering/Resolving]
